FAERS Safety Report 8311475-X (Version None)
Quarter: 2012Q2

REPORT INFORMATION
  Report Type: 
  Country: None (occurrence: None)
  Receive Date: 20120425
  Receipt Date: 20120417
  Transmission Date: 20120825
  Serious: Yes (Hospitalization, Other)
  Sender: FDA-Public Use
  Company Number: PHEH2012US008141

PATIENT
  Sex: Female

DRUGS (15)
  1. NEXIUM [Concomitant]
     Dosage: 2 DF, DAILY.
  2. NICOTINE [Concomitant]
     Dosage: UNK UKN, UNK
  3. PROVIGIL [Concomitant]
     Dosage: UNK UKN, UNK
  4. SUBOXONE [Concomitant]
     Dosage: UNK UKN, UNK
  5. ZOLOFT [Concomitant]
     Dosage: 2 DF AT BEDTIME.
  6. RESTORIL [Concomitant]
     Dosage: 2 DF AT BEDTIME.
  7. ZONEGRAN [Concomitant]
     Dosage: 2 DF, BID
  8. GILENYA [Suspect]
     Indication: MULTIPLE SCLEROSIS
     Dosage: 0.5 MG, BID
     Route: 048
     Dates: start: 20110901, end: 20120401
  9. KLONOPIN [Concomitant]
     Dosage: 1 MG, QID
  10. SOMA [Concomitant]
     Dosage: 1 DF, QD
  11. GABAPENTIN [Concomitant]
     Dosage: 2 DF, TID
  12. NOVANTRONE [Suspect]
     Dosage: 10 MG / M^2 EVERY 3-4 MONTHS.
  13. BENTYL [Concomitant]
     Dosage: UNK UKN, UNK
  14. REMERON [Concomitant]
     Dosage: 30 MG, AT BEDTIME
  15. ADDERALL 5 [Concomitant]
     Dosage: 1 DF, QD, BEFORE MEALS DAILY.

REACTIONS (26)
  - PNEUMONIA [None]
  - PYREXIA [None]
  - BLOOD CALCIUM DECREASED [None]
  - OVERDOSE [None]
  - LUNG INFILTRATION [None]
  - HYPONATRAEMIA [None]
  - HYPOAESTHESIA [None]
  - HYPOXIA [None]
  - WHITE BLOOD CELL COUNT INCREASED [None]
  - DEPRESSION [None]
  - HEART RATE INCREASED [None]
  - ASPARTATE AMINOTRANSFERASE INCREASED [None]
  - HEADACHE [None]
  - CONVULSION [None]
  - RADIAL NERVE PALSY [None]
  - ANXIETY [None]
  - DYSPNOEA [None]
  - ASTHENIA [None]
  - CHEST PAIN [None]
  - OXYGEN SATURATION DECREASED [None]
  - BLOOD PRESSURE DECREASED [None]
  - BLOOD ALBUMIN DECREASED [None]
  - TACHYPNOEA [None]
  - PRODUCTIVE COUGH [None]
  - NAUSEA [None]
  - PAIN IN EXTREMITY [None]
